FAERS Safety Report 23066580 (Version 2)
Quarter: 2023Q4

REPORT INFORMATION
  Report Type: Spontaneous
  Country: JP (occurrence: JP)
  Receive Date: 20231015
  Receipt Date: 20231113
  Transmission Date: 20240110
  Serious: Yes (Hospitalization)
  Sender: FDA-Public Use
  Company Number: JP-Eisai Inc (Eisai China)-EC-2023-138445

PATIENT
  Age: 64 Year
  Sex: Female

DRUGS (6)
  1. LENVIMA [Suspect]
     Active Substance: LENVATINIB
     Indication: Endometrial cancer
     Route: 048
     Dates: start: 20230202, end: 20230411
  2. LENVIMA [Suspect]
     Active Substance: LENVATINIB
     Route: 048
     Dates: start: 20230417, end: 20230426
  3. LENVIMA [Suspect]
     Active Substance: LENVATINIB
     Route: 048
     Dates: start: 20230427
  4. KEYTRUDA [Suspect]
     Active Substance: PEMBROLIZUMAB
     Indication: Endometrial cancer
     Route: 041
     Dates: start: 20230202
  5. LEVOTHYROXINE [Concomitant]
     Active Substance: LEVOTHYROXINE
     Indication: Hypothyroidism
     Dates: start: 202303, end: 20230416
  6. LEVOTHYROXINE [Concomitant]
     Active Substance: LEVOTHYROXINE
     Dates: start: 20230417

REACTIONS (8)
  - Dehydration [Recovering/Resolving]
  - Stomatitis [Recovered/Resolved]
  - Malaise [Recovering/Resolving]
  - Hypoaesthesia [Not Recovered/Not Resolved]
  - Decreased appetite [Unknown]
  - Fatigue [Not Recovered/Not Resolved]
  - Asthenia [Recovering/Resolving]
  - Hypophagia [Recovering/Resolving]

NARRATIVE: CASE EVENT DATE: 20230401
